FAERS Safety Report 17604919 (Version 4)
Quarter: 2020Q2

REPORT INFORMATION
  Report Type: Spontaneous
  Country: US (occurrence: US)
  Receive Date: 20200331
  Receipt Date: 20200501
  Transmission Date: 20200713
  Serious: Yes (Other)
  Sender: FDA-Public Use
  Company Number: US-GLAXOSMITHKLINE-US2020AMR055463

PATIENT
  Age: 66 Year
  Sex: Female

DRUGS (2)
  1. LISINOPRIL. [Concomitant]
     Active Substance: LISINOPRIL
     Indication: HYPERTENSION
     Dosage: UNK
  2. ZEJULA [Suspect]
     Active Substance: NIRAPARIB
     Indication: MALIGNANT PERITONEAL NEOPLASM
     Dosage: 100 MG, QD
     Dates: start: 20200313

REACTIONS (8)
  - Dehydration [Unknown]
  - Neuropathy peripheral [Unknown]
  - Thirst [Unknown]
  - Carbohydrate antigen 125 increased [Not Recovered/Not Resolved]
  - Tremor [Unknown]
  - Discomfort [Unknown]
  - Dry mouth [Unknown]
  - White blood cell count decreased [Unknown]

NARRATIVE: CASE EVENT DATE: 202003
